FAERS Safety Report 5174094-2 (Version None)
Quarter: 2006Q4

REPORT INFORMATION
  Report Type: 
  Country: None (occurrence: None)
  Receive Date: 20061214
  Receipt Date: 20060901
  Transmission Date: 20070319
  Serious: Yes (Other)
  Sender: FDA-Public Use
  Company Number: 2006UW17305

PATIENT
  Age: 77 Year
  Sex: Female

DRUGS (2)
  1. ARIMIDEX [Suspect]
     Route: 048
     Dates: start: 20051101
  2. AMINOCAPROIC ACID [Concomitant]

REACTIONS (3)
  - DRY THROAT [None]
  - HAEMORRHAGE [None]
  - JOINT STIFFNESS [None]
